FAERS Safety Report 15042956 (Version 1)
Quarter: 2018Q2

REPORT INFORMATION
  Report Type: Spontaneous
  Country: MX (occurrence: MX)
  Receive Date: 20180621
  Receipt Date: 20180621
  Transmission Date: 20180711
  Serious: Yes (Other)
  Sender: FDA-Public Use
  Company Number: MX-ROCHE-2143280

PATIENT
  Age: 58 Year
  Sex: Female

DRUGS (6)
  1. AVASTIN [Suspect]
     Active Substance: BEVACIZUMAB
     Route: 065
     Dates: start: 20160114, end: 201712
  2. AVASTIN [Suspect]
     Active Substance: BEVACIZUMAB
     Indication: OVARIAN CANCER
     Dosage: 4 CYCLES . TREATMENT COMPLETED
     Route: 065
     Dates: start: 20130221, end: 20130527
  3. CARBOPLATIN. [Concomitant]
     Active Substance: CARBOPLATIN
     Indication: OVARIAN CANCER
     Dosage: 4 CYCLES. TREATMENT COMPLETED
     Route: 065
     Dates: start: 20130221, end: 20130527
  4. CARBOPLATIN. [Concomitant]
     Active Substance: CARBOPLATIN
     Dosage: TREATMENT COMPLETED
     Route: 065
     Dates: end: 20151216
  5. PACLITAXEL. [Concomitant]
     Active Substance: PACLITAXEL
     Dosage: TREATMENT COMPLETED
     Route: 065
     Dates: start: 20151216
  6. PACLITAXEL. [Concomitant]
     Active Substance: PACLITAXEL
     Indication: OVARIAN CANCER
     Route: 065
     Dates: start: 20130221, end: 20130527

REACTIONS (1)
  - Neoplasm progression [Not Recovered/Not Resolved]

NARRATIVE: CASE EVENT DATE: 201712
